FAERS Safety Report 10730331 (Version 1)
Quarter: 2015Q1

REPORT INFORMATION
  Report Type: Spontaneous
  Country: US (occurrence: US)
  Receive Date: 20150122
  Receipt Date: 20150122
  Transmission Date: 20150721
  Serious: Yes (Hospitalization, Other)
  Sender: FDA-Public Use
  Company Number: US-PFIZER INC-2015020226

PATIENT
  Sex: Female

DRUGS (2)
  1. XANAX [Suspect]
     Active Substance: ALPRAZOLAM
     Dosage: 4 MG, UNK
  2. KLONOPIN [Suspect]
     Active Substance: CLONAZEPAM
     Dosage: 4 MG, UNK

REACTIONS (4)
  - Drug dependence [Unknown]
  - Suicide attempt [Unknown]
  - Feeling abnormal [Unknown]
  - Depression [Unknown]
